FAERS Safety Report 10566053 (Version 1)
Quarter: 2014Q4

REPORT INFORMATION
  Report Type: Spontaneous
  Country: US (occurrence: None)
  Receive Date: 20141104
  Receipt Date: 20141104
  Transmission Date: 20150529
  Serious: Yes (Other)
  Sender: FDA-Public Use
  Company Number: None

PATIENT
  Age: 46 Year
  Sex: Female
  Weight: 70.31 kg

DRUGS (1)
  1. CORTISONE [Suspect]
     Active Substance: CORTISONE\HYDROCORTISONE
     Indication: ECZEMA
     Dosage: 1%HYDROCORTISONE  ONCE DAILY APPLIED TO A SURFACE, USUALLY THE SKIN
     Route: 061

REACTIONS (3)
  - Stasis dermatitis [None]
  - Drug withdrawal syndrome [None]
  - Adrenal insufficiency [None]

NARRATIVE: CASE EVENT DATE: 20141103
